FAERS Safety Report 13089503 (Version 2)
Quarter: 2017Q1

REPORT INFORMATION
  Report Type: Spontaneous
  Country: US (occurrence: US)
  Receive Date: 20170105
  Receipt Date: 20170321
  Transmission Date: 20170428
  Serious: No
  Sender: FDA-Public Use
  Company Number: US-PFIZER INC-2016605365

PATIENT
  Age: 59 Year
  Sex: Female

DRUGS (3)
  1. METAXALONE. [Suspect]
     Active Substance: METAXALONE
     Indication: PAIN IN EXTREMITY
  2. METAXALONE. [Suspect]
     Active Substance: METAXALONE
     Indication: PAIN
     Dosage: 4 DF, 1X/DAY
     Dates: start: 2006
  3. METAXALONE. [Suspect]
     Active Substance: METAXALONE
     Indication: BACK PAIN
     Dosage: 800 MG, 4X/DAY
     Route: 048
     Dates: start: 200910, end: 20130328

REACTIONS (1)
  - Drug ineffective [Unknown]

NARRATIVE: CASE EVENT DATE: 20130328
